FAERS Safety Report 8833171 (Version 1)
Quarter: 2012Q4

REPORT INFORMATION
  Report Type: 
  Country: ES (occurrence: ES)
  Receive Date: 20121010
  Receipt Date: 20121010
  Transmission Date: 20130627
  Serious: Yes (Disabling)
  Sender: FDA-Public Use
  Company Number: PHHY2012ES088671

PATIENT
  Age: 33 Year
  Sex: Female

DRUGS (3)
  1. TEGRETOL [Suspect]
     Indication: EPILEPSY
     Dosage: 1200 mg per day
  2. TEGRETOL [Suspect]
     Dosage: 800 mg per day
  3. RETIGABINE [Suspect]
     Indication: EPILEPSY
     Dosage: 450 mg per day

REACTIONS (5)
  - Complex partial seizures [Not Recovered/Not Resolved]
  - Discomfort [Not Recovered/Not Resolved]
  - Tongue biting [Not Recovered/Not Resolved]
  - Asthenia [Not Recovered/Not Resolved]
  - Anticonvulsant drug level increased [Not Recovered/Not Resolved]
